FAERS Safety Report 15854550 (Version 1)
Quarter: 2019Q1

REPORT INFORMATION
  Report Type: Report from Study
  Country: US (occurrence: US)
  Receive Date: 20190122
  Receipt Date: 20190122
  Transmission Date: 20190417
  Serious: Yes (Hospitalization)
  Sender: FDA-Public Use
  Company Number: US-MYLANLABS-2018M1091682

PATIENT
  Age: 10 Year
  Sex: Female
  Weight: 38.1 kg

DRUGS (76)
  1. ORKAMBI [Concomitant]
     Active Substance: IVACAFTOR\LUMACAFTOR
     Indication: GENE MUTATION
     Dosage: 2 DF, BID
     Route: 048
     Dates: start: 20160608
  2. AZITHROMYCIN ANHYDROUS. [Concomitant]
     Active Substance: AZITHROMYCIN ANHYDROUS
     Indication: PSEUDOMONAS INFECTION
     Dosage: 250 MILLIGRAM, 3XW
     Route: 048
     Dates: start: 20130108
  3. MELATONIN [Concomitant]
     Active Substance: MELATONIN
     Indication: SLEEP DISORDER
     Dosage: 3 MG, QD
     Route: 048
     Dates: start: 20140528
  4. CREON [Concomitant]
     Active Substance: PANCRELIPASE AMYLASE\PANCRELIPASE LIPASE\PANCRELIPASE PROTEASE
     Dosage: 20 DOSAGE FORM,  (12), QD
     Route: 048
     Dates: start: 20170917, end: 20170918
  5. ALBUTEROL                          /00139501/ [Concomitant]
     Active Substance: ALBUTEROL
     Dosage: 2 DOSAGE FORM, TID
     Dates: start: 20170921, end: 20170921
  6. HEPARIN [Concomitant]
     Active Substance: HEPARIN SODIUM
     Indication: IRRIGATION THERAPY
     Dosage: 10 DOSAGE FORM, QD
     Route: 042
     Dates: start: 20170915, end: 20170915
  7. HEPARIN FLUSH [Concomitant]
     Active Substance: HEPARIN SODIUM
     Dosage: UNK
     Route: 065
     Dates: start: 20170926, end: 20170926
  8. IBUPROFEN. [Concomitant]
     Active Substance: IBUPROFEN
     Dosage: 400 MILLIGRAM, QD
     Route: 048
     Dates: start: 20170921, end: 20170921
  9. LANSOPRAZOLE. [Concomitant]
     Active Substance: LANSOPRAZOLE
     Dosage: 30 MILLIGRAM, QD
     Route: 048
     Dates: start: 20170926, end: 20170926
  10. HYPERSOL [Concomitant]
     Indication: CYSTIC FIBROSIS LUNG
     Dosage: 1 DF (4ML), BID
     Route: 055
     Dates: start: 20130220
  11. SINGULAIR [Concomitant]
     Active Substance: MONTELUKAST SODIUM
     Indication: ASTHMA
     Dosage: 5 MG, QD (HS)
     Route: 048
     Dates: start: 20130108
  12. CREON [Concomitant]
     Active Substance: PANCRELIPASE AMYLASE\PANCRELIPASE LIPASE\PANCRELIPASE PROTEASE
     Dosage: 3 DOSAGE FORM (12), QD
     Route: 048
     Dates: start: 20170912, end: 20170912
  13. CREON [Concomitant]
     Active Substance: PANCRELIPASE AMYLASE\PANCRELIPASE LIPASE\PANCRELIPASE PROTEASE
     Dosage: 14 DOSAGE FORM  (12), QD
     Route: 048
     Dates: start: 20170913, end: 20170913
  14. CREON [Concomitant]
     Active Substance: PANCRELIPASE AMYLASE\PANCRELIPASE LIPASE\PANCRELIPASE PROTEASE
     Dosage: 12 DOSAGE FORM,  (12), QD
     Route: 048
     Dates: start: 20170926, end: 20170926
  15. SODIUM CHLORIDE. [Concomitant]
     Active Substance: SODIUM CHLORIDE
     Dosage: 4 MILLILITER, QD
     Route: 042
     Dates: start: 20170913, end: 20170925
  16. ALBUTEROL                          /00139501/ [Concomitant]
     Active Substance: ALBUTEROL
     Dosage: 2 DOSAGE FORM, QID
     Route: 055
     Dates: start: 20170922, end: 20170924
  17. ALBUTEROL                          /00139501/ [Concomitant]
     Active Substance: ALBUTEROL
     Dosage: 2 DOSAGE FORM, BID
     Route: 055
     Dates: start: 20170926, end: 20170926
  18. CETRIZINE [Concomitant]
     Active Substance: CETIRIZINE HYDROCHLORIDE
     Indication: HYPERSENSITIVITY
  19. HEPARIN FLUSH [Concomitant]
     Active Substance: HEPARIN SODIUM
     Dosage: UNK
     Route: 065
     Dates: start: 20170914, end: 20170914
  20. HEPARIN FLUSH [Concomitant]
     Active Substance: HEPARIN SODIUM
     Dosage: UNK
  21. LACTOBACILLUS ACIDOPHILUS [Concomitant]
     Active Substance: LACTOBACILLUS ACIDOPHILUS
     Dosage: 4 DOSAGE FORM, TID
     Route: 048
     Dates: start: 20170925, end: 20170925
  22. TOBI PODHALER [Suspect]
     Active Substance: TOBRAMYCIN
     Indication: CYSTIC FIBROSIS
     Dosage: UNK
  23. AZITHROMYCIN ANHYDROUS. [Concomitant]
     Active Substance: AZITHROMYCIN ANHYDROUS
     Dosage: 250 MILLIGRAM, 3XW
     Route: 048
     Dates: start: 20170922
  24. ADVAIR HFA [Concomitant]
     Active Substance: FLUTICASONE PROPIONATE\SALMETEROL XINAFOATE
     Indication: CYSTIC FIBROSIS LUNG
     Dosage: 2 DF (2 PUFFS), BID
     Route: 055
     Dates: start: 20130522
  25. CREON [Concomitant]
     Active Substance: PANCRELIPASE AMYLASE\PANCRELIPASE LIPASE\PANCRELIPASE PROTEASE
     Dosage: 18 DOSAGE FORM, (12),  QD
     Route: 048
     Dates: start: 20170919, end: 20170925
  26. TOBRAMYCIN. [Concomitant]
     Active Substance: TOBRAMYCIN
     Dosage: 400 MILLIGRAM, QD
     Route: 042
     Dates: start: 20170913, end: 20170925
  27. HEPARIN FLUSH [Concomitant]
     Active Substance: HEPARIN SODIUM
     Dosage: UNK
     Route: 065
     Dates: start: 20170923, end: 20170923
  28. IBUPROFEN. [Concomitant]
     Active Substance: IBUPROFEN
     Dosage: 400 MILLIGRAM, TID
     Route: 048
     Dates: start: 20170915, end: 20170916
  29. LACTOBACILLUS ACIDOPHILUS [Concomitant]
     Active Substance: LACTOBACILLUS ACIDOPHILUS
     Dosage: 4 DOSAGE FORM, QD
     Route: 048
     Dates: start: 20170926, end: 20170926
  30. MEROPENEM. [Concomitant]
     Active Substance: MEROPENEM
     Indication: INFECTION
     Dosage: 1500 MILLIGRAM, QD
     Route: 048
     Dates: start: 20170925, end: 20170925
  31. SULFAMETHOXAZOLE AND TRIMETHOPRIM [Concomitant]
     Active Substance: SULFAMETHOXAZOLE\TRIMETHOPRIM
     Indication: INFECTION
     Dosage: 1 DOSAGE FORM, QD
     Route: 048
     Dates: start: 20170925, end: 20170926
  32. CREON [Concomitant]
     Active Substance: PANCRELIPASE AMYLASE\PANCRELIPASE LIPASE\PANCRELIPASE PROTEASE
     Dosage: 18 DOSAGE FORM  (12), QD
     Route: 048
     Dates: start: 20170914, end: 20170914
  33. CREON [Concomitant]
     Active Substance: PANCRELIPASE AMYLASE\PANCRELIPASE LIPASE\PANCRELIPASE PROTEASE
     Dosage: 18 DOSAGE FORM, (12),  QD
     Route: 048
     Dates: start: 20170916, end: 20170916
  34. LEVOCETIRIZINE [Concomitant]
     Active Substance: LEVOCETIRIZINE
     Indication: HYPERSENSITIVITY
     Dosage: 5 MILLIGRAM, QD
     Route: 048
     Dates: start: 20160812
  35. ALBUTEROL                          /00139501/ [Concomitant]
     Active Substance: ALBUTEROL
     Dosage: 2 DOSAGE FORM, TID
     Route: 055
     Dates: start: 20170925, end: 20170925
  36. CETRIZINE [Concomitant]
     Active Substance: CETIRIZINE HYDROCHLORIDE
     Indication: ASTHMA
     Dosage: 10 MG, UNK
     Route: 048
     Dates: start: 20170913, end: 20170926
  37. CYPROHEPATADINE [Concomitant]
     Active Substance: CYPROHEPTADINE HYDROCHLORIDE
     Indication: DECREASED APPETITE
     Dosage: 4 MILLIGRAM, QD
     Route: 048
     Dates: start: 20170925, end: 20170926
  38. LACTOBACILLUS ACIDOPHILUS [Concomitant]
     Active Substance: LACTOBACILLUS ACIDOPHILUS
     Dosage: 4 DOSAGE FORM, QD
     Route: 048
     Dates: start: 20170922, end: 20170922
  39. RIFAMPIN. [Concomitant]
     Active Substance: RIFAMPIN
     Dosage: 300 MILLIGRAM, QD
     Route: 048
     Dates: start: 20170914, end: 20170914
  40. CREON [Concomitant]
     Active Substance: PANCRELIPASE AMYLASE\PANCRELIPASE LIPASE\PANCRELIPASE PROTEASE
     Indication: NUTRITIONAL SUPPLEMENTATION
     Dosage: UNK
     Route: 065
     Dates: start: 20131218
  41. LEVALBUTEROL                       /01419301/ [Concomitant]
     Active Substance: LEVALBUTEROL
     Indication: CYSTIC FIBROSIS LUNG
     Dosage: 2 DOSAGE FORM, TID
     Route: 055
     Dates: start: 20161201
  42. TOBRAMYCIN. [Concomitant]
     Active Substance: TOBRAMYCIN
     Indication: PSEUDOMONAS INFECTION
     Dosage: 300 MILLIGRAM, BID
     Route: 055
     Dates: start: 20170412
  43. ALBUTEROL                          /00139501/ [Concomitant]
     Active Substance: ALBUTEROL
     Indication: CYSTIC FIBROSIS LUNG
     Dosage: 2 DOSAGE FORM, QID
     Route: 055
     Dates: start: 20170912, end: 20170919
  44. ALBUTEROL                          /00139501/ [Concomitant]
     Active Substance: ALBUTEROL
     Dosage: 2 DOSAGE FORM, TID
     Route: 055
     Dates: start: 20170920, end: 20170921
  45. HEPARIN FLUSH [Concomitant]
     Active Substance: HEPARIN SODIUM
     Dosage: UNK
     Route: 065
     Dates: start: 20170919, end: 20170920
  46. HEPARIN FLUSH [Concomitant]
     Active Substance: HEPARIN SODIUM
     Dosage: UNK
     Route: 065
     Dates: start: 20170921, end: 20170921
  47. HEPARIN FLUSH [Concomitant]
     Active Substance: HEPARIN SODIUM
     Dosage: UNK
     Route: 065
     Dates: start: 20170924, end: 20170924
  48. IBUPROFEN. [Concomitant]
     Active Substance: IBUPROFEN
     Indication: PAIN
     Dosage: 400 MILLIGRAM, QD
     Route: 048
     Dates: start: 20170913, end: 20170913
  49. EPIPEN [Concomitant]
     Active Substance: EPINEPHRINE
     Dosage: 1 DF, PRN
     Route: 030
     Dates: start: 20170922
  50. FLONASE                            /00908302/ [Concomitant]
     Active Substance: MOMETASONE FUROATE
     Indication: PNEUMONITIS
     Dosage: 1 DOSAGE FORM, BID
     Route: 045
     Dates: start: 20160113
  51. MEGESTROL [Concomitant]
     Active Substance: MEGESTROL
     Indication: DECREASED APPETITE
     Dosage: 100 MG, QD
     Route: 048
     Dates: start: 20140709
  52. CREON [Concomitant]
     Active Substance: PANCRELIPASE AMYLASE\PANCRELIPASE LIPASE\PANCRELIPASE PROTEASE
     Indication: PANCREATIC FAILURE
     Dosage: UNK UNK, QD
     Route: 048
     Dates: start: 20141015, end: 20170912
  53. SODIUM CHLORIDE. [Concomitant]
     Active Substance: SODIUM CHLORIDE
     Dosage: 4 MILLILITER, QD
     Route: 042
     Dates: start: 20170926, end: 20170926
  54. ALBUTEROL                          /00139501/ [Concomitant]
     Active Substance: ALBUTEROL
     Dosage: 1 DOSAGE FORM, QD
     Route: 055
     Dates: start: 20170921, end: 20170921
  55. HEPARIN FLUSH [Concomitant]
     Active Substance: HEPARIN SODIUM
     Indication: IRRIGATION THERAPY
     Dosage: UNK
     Route: 065
     Dates: start: 20170913, end: 20170913
  56. IBUPROFEN. [Concomitant]
     Active Substance: IBUPROFEN
     Indication: PYREXIA
     Dosage: 400 MILLIGRAM, BID
     Route: 048
     Dates: start: 20170914, end: 20170914
  57. IBUPROFEN. [Concomitant]
     Active Substance: IBUPROFEN
     Dosage: 400 MILLIGRAM, BID
     Route: 048
     Dates: start: 20170917, end: 20170917
  58. RIFAMPIN. [Concomitant]
     Active Substance: RIFAMPIN
     Dosage: 300 MILLIGRAM, QD
     Route: 048
     Dates: start: 20170925, end: 20170925
  59. PULMOZYME [Concomitant]
     Active Substance: DORNASE ALFA
     Indication: CYSTIC FIBROSIS LUNG
     Dosage: 1 DF (2.5 MG), QD
     Route: 055
     Dates: start: 20130106
  60. PULMOZYME [Concomitant]
     Active Substance: DORNASE ALFA
     Dosage: UNK
     Route: 065
     Dates: start: 20130108
  61. EPIPEN [Concomitant]
     Active Substance: EPINEPHRINE
     Indication: ANAPHYLACTIC REACTION
     Dosage: 1 DF, PRN
     Route: 030
     Dates: start: 20141015
  62. CREON [Concomitant]
     Active Substance: PANCRELIPASE AMYLASE\PANCRELIPASE LIPASE\PANCRELIPASE PROTEASE
     Dosage: 20 DOSAGE FORM (12), QD
     Route: 048
     Dates: start: 20170915, end: 20170915
  63. LACTOBACILLUS ACIDOPHILUS [Concomitant]
     Active Substance: LACTOBACILLUS ACIDOPHILUS
     Indication: PROPHYLAXIS
     Dosage: 4 DOSAGE FORM, BID
     Route: 048
     Dates: start: 20170918, end: 20170920
  64. LANSOPRAZOLE. [Concomitant]
     Active Substance: LANSOPRAZOLE
     Indication: GASTROOESOPHAGEAL REFLUX DISEASE
     Dosage: 30 MILLIGRAM, BID
     Route: 048
     Dates: start: 20170913, end: 20170925
  65. RIFAMPIN. [Concomitant]
     Active Substance: RIFAMPIN
     Indication: INFECTION
     Dosage: 300 MILLIGRAM, QD
     Route: 048
     Dates: start: 20170913, end: 20170913
  66. TOBI [Suspect]
     Active Substance: TOBRAMYCIN
     Indication: CYSTIC FIBROSIS
     Dosage: 300 MG, BID
     Route: 055
     Dates: start: 20170601
  67. TOBI [Suspect]
     Active Substance: TOBRAMYCIN
     Dosage: UNK
     Route: 065
     Dates: start: 20170901, end: 20170929
  68. PREVACID [Concomitant]
     Active Substance: LANSOPRAZOLE
     Indication: GASTROOESOPHAGEAL REFLUX DISEASE
     Dosage: 30 MILLIGRAM, BID
     Route: 048
     Dates: start: 20130108
  69. VITAMIN D3 [Concomitant]
     Active Substance: CHOLECALCIFEROL
     Indication: VITAMIN D DEFICIENCY
     Dosage: 50000 INTERNATIONAL UNIT, QW
     Route: 048
     Dates: start: 20170412
  70. LEVOCETIRIZINE [Concomitant]
     Active Substance: LEVOCETIRIZINE
     Dosage: UNK
     Route: 065
     Dates: start: 20160822
  71. SODIUM CHLORIDE. [Concomitant]
     Active Substance: SODIUM CHLORIDE
     Indication: CYSTIC FIBROSIS LUNG
     Dosage: 4 MILLILITER, QD
     Route: 055
     Dates: start: 20170912, end: 20170912
  72. SODIUM CHLORIDE. [Concomitant]
     Active Substance: SODIUM CHLORIDE
     Dosage: 100 MILLILITER, QD
     Route: 042
     Dates: start: 20170913, end: 20170925
  73. HEPARIN FLUSH [Concomitant]
     Active Substance: HEPARIN SODIUM
     Dosage: UNK
     Route: 065
     Dates: start: 20170916, end: 20170916
  74. HEPARIN FLUSH [Concomitant]
     Active Substance: HEPARIN SODIUM
     Dosage: UNK
     Route: 065
     Dates: start: 20170917, end: 20170917
  75. HEPARIN FLUSH [Concomitant]
     Active Substance: HEPARIN SODIUM
     Dosage: UNK
     Route: 065
     Dates: start: 20170918, end: 20170918
  76. HEPARIN FLUSH [Concomitant]
     Active Substance: HEPARIN SODIUM
     Dosage: UNK
     Route: 065
     Dates: start: 20170922, end: 20170922

REACTIONS (11)
  - Protein total decreased [Unknown]
  - White blood cell count decreased [Unknown]
  - Blood glucose increased [Unknown]
  - Bronchial wall thickening [Unknown]
  - Vitamin E decreased [Unknown]
  - Forced expiratory volume decreased [Unknown]
  - Blood chloride increased [Unknown]
  - Prothrombin time prolonged [Unknown]
  - Drug level increased [Unknown]
  - Infective pulmonary exacerbation of cystic fibrosis [Recovered/Resolved]
  - Blood urea decreased [Unknown]

NARRATIVE: CASE EVENT DATE: 20170830
